FAERS Safety Report 6178453-0 (Version None)
Quarter: 2009Q2

REPORT INFORMATION
  Report Type: 
  Country: None (occurrence: None)
  Receive Date: 20090430
  Receipt Date: 20090416
  Transmission Date: 20091009
  Serious: Yes (Death, Hospitalization)
  Sender: FDA-Public Use
  Company Number: A-CH2009-24869

PATIENT
  Age: 70 Year
  Sex: Male
  Weight: 56.6 kg

DRUGS (14)
  1. TRACLEER [Suspect]
     Indication: PULMONARY HYPERTENSION
     Dosage: 125 MG, ORAL; 62.5 MG, ORAL
     Route: 048
     Dates: start: 20040414, end: 20040511
  2. TRACLEER [Suspect]
     Indication: PULMONARY HYPERTENSION
     Dosage: 125 MG, ORAL; 62.5 MG, ORAL
     Route: 048
     Dates: start: 20040512, end: 20090411
  3. BUMETANIDE [Concomitant]
  4. DIGOXIN [Concomitant]
  5. AMIODARONE HCL [Concomitant]
  6. LOGIMAT (FELODIPINE, METOPROLOL SUCCINATE) [Concomitant]
  7. ALLOPURINOL [Concomitant]
  8. LORAZEPAM [Concomitant]
  9. RABEPRAZOLE SODIUM [Concomitant]
  10. SILDENAFIL TABLET [Concomitant]
  11. DUOVENT (FENOTEROL HYDROBROMIDE, IPRATROPIUM BROMIDE) [Concomitant]
  12. PHENPROCOUMON (PHENPROCOUMON) [Concomitant]
  13. LISINOPRIL [Concomitant]
  14. FLUTICASONE PROPIONATE [Concomitant]

REACTIONS (1)
  - CEREBROVASCULAR ACCIDENT [None]
